FAERS Safety Report 6920849-0 (Version None)
Quarter: 2010Q3

REPORT INFORMATION
  Report Type: 
  Country: None (occurrence: None)
  Receive Date: 20100804
  Receipt Date: 20100107
  Transmission Date: 20110219
  Serious: No
  Sender: FDA-Public Use
  Company Number: 2010-0087

PATIENT
  Age: 42 Year
  Sex: Female
  Weight: 71.6 kg

DRUGS (5)
  1. SOMATULINE DEPOT [Suspect]
     Indication: ACROMEGALY
     Dosage: 90 MG (90 MG, 1 IN 1 M), SUBCUTANEOUS / /2009 - DOSAGE INCREASED ON 16/OCT/2009
     Route: 058
     Dates: start: 20090101
  2. SOMATULINE DEPOT [Suspect]
     Indication: ACROMEGALY
     Dosage: 120 MG (120 MG, 1 IN 1 M), SUBCUTANEOUS
     Route: 058
     Dates: start: 20091016
  3. AMITRIPTYLINE HYDROCHLORIDE [Concomitant]
  4. METHOCARBAMOL [Concomitant]
  5. BACTRIM [Concomitant]

REACTIONS (3)
  - BLOOD PRESSURE INCREASED [None]
  - CYST [None]
  - THROMBIN TIME ABNORMAL [None]
